FAERS Safety Report 6715596-4 (Version None)
Quarter: 2010Q2

REPORT INFORMATION
  Report Type: 
  Country: None (occurrence: None)
  Receive Date: 20100507
  Receipt Date: 20100503
  Transmission Date: 20101027
  Serious: Yes (Death)
  Sender: FDA-Public Use
  Company Number: PHHY2010US28843

PATIENT
  Sex: Female

DRUGS (6)
  1. GLEEVEC [Suspect]
     Indication: GASTRIC CANCER
     Dosage: 600 MG/DAY
     Route: 048
     Dates: start: 20071210
  2. VITAMINS [Concomitant]
  3. BUSPAR [Concomitant]
  4. METFORMIN [Concomitant]
  5. VYTORIN [Concomitant]
  6. PREVACID [Concomitant]

REACTIONS (1)
  - DEATH [None]
